FAERS Safety Report 17313766 (Version 2)
Quarter: 2020Q1

REPORT INFORMATION
  Report Type: Spontaneous
  Country: US (occurrence: US)
  Receive Date: 20200124
  Receipt Date: 20200330
  Transmission Date: 20200409
  Serious: Yes (Other)
  Sender: FDA-Public Use
  Company Number: US-GILEAD-2020-0448029

PATIENT
  Sex: Male

DRUGS (42)
  1. NOVIR [RITONAVIR] [Concomitant]
  2. CYMBALTA [Concomitant]
     Active Substance: DULOXETINE HYDROCHLORIDE
  3. KADIAN [Concomitant]
     Active Substance: MORPHINE SULFATE
  4. FUROSEMIDE. [Concomitant]
     Active Substance: FUROSEMIDE
  5. VITAMIN D3 [Concomitant]
     Active Substance: CHOLECALCIFEROL
  6. CLINDAMYCIN. [Concomitant]
     Active Substance: CLINDAMYCIN
  7. PROPRANOLOL [Concomitant]
     Active Substance: PROPRANOLOL HYDROCHLORIDE
  8. HYDROXYZINE HCL [Concomitant]
     Active Substance: HYDROXYZINE HYDROCHLORIDE
  9. TRUVADA [Suspect]
     Active Substance: EMTRICITABINE\TENOFOVIR DISOPROXIL FUMARATE
     Indication: HIV INFECTION
     Dosage: 1 DOSAGE FORM, QD
     Route: 048
     Dates: start: 2006, end: 201310
  10. OXYCODONE [Concomitant]
     Active Substance: OXYCODONE
  11. POLYETHYLENE GLYCOL [Concomitant]
     Active Substance: POLYETHYLENE GLYCOLS
  12. MICROLET [ETHINYLESTRADIOL;GESTODENE] [Concomitant]
  13. NICODERM CQ [Concomitant]
     Active Substance: NICOTINE
  14. ANDROGEL [Concomitant]
     Active Substance: TESTOSTERONE
  15. RISPERIDONE. [Concomitant]
     Active Substance: RISPERIDONE
  16. SPIRONOLACTONE. [Concomitant]
     Active Substance: SPIRONOLACTONE
  17. DAPSONE. [Concomitant]
     Active Substance: DAPSONE
  18. PREZISTA [Concomitant]
     Active Substance: DARUNAVIR ETHANOLATE
  19. NORTRIPTYLINE [Concomitant]
     Active Substance: NORTRIPTYLINE
  20. MICROLET [ETHINYLESTRADIOL;GESTODENE] [Concomitant]
  21. LORAZEPAM. [Concomitant]
     Active Substance: LORAZEPAM
  22. MORPHINE SULFATE. [Concomitant]
     Active Substance: MORPHINE SULFATE
  23. STRIBILD [Suspect]
     Active Substance: COBICISTAT\ELVITEGRAVIR\EMTRICITABINE\TENOFOVIR DISOPROXIL FUMARATE
     Indication: HIV INFECTION
     Dosage: 1 DOSAGE FORM, QD
     Route: 048
     Dates: start: 201310, end: 2014
  24. CONTOUR [ESOMEPRAZOLE SODIUM] [Concomitant]
  25. IMIQUIMOD. [Concomitant]
     Active Substance: IMIQUIMOD
  26. METFORMIN [Concomitant]
     Active Substance: METFORMIN HYDROCHLORIDE
  27. FERROUS SULFATE. [Concomitant]
     Active Substance: FERROUS SULFATE
  28. DULOXETINE. [Concomitant]
     Active Substance: DULOXETINE
  29. GENERLAC [Concomitant]
     Active Substance: LACTULOSE
  30. VENTOLIN HFA [Concomitant]
     Active Substance: ALBUTEROL SULFATE
  31. TEMAZEPAM. [Concomitant]
     Active Substance: TEMAZEPAM
  32. TRETINOIN. [Concomitant]
     Active Substance: TRETINOIN
  33. SPIRIVA [Concomitant]
     Active Substance: TIOTROPIUM BROMIDE MONOHYDRATE
  34. FENTANYL. [Concomitant]
     Active Substance: FENTANYL
  35. FAMOTIDINE. [Concomitant]
     Active Substance: FAMOTIDINE
  36. AZITHROMYCIN ANHYDROUS. [Concomitant]
     Active Substance: AZITHROMYCIN ANHYDROUS
  37. MIRTAZAPINE. [Concomitant]
     Active Substance: MIRTAZAPINE
  38. GLIPIZIDE. [Concomitant]
     Active Substance: GLIPIZIDE
  39. MORPHINE SULPHATE [Concomitant]
     Active Substance: MORPHINE SULFATE
  40. LAMOTRIGINE. [Concomitant]
     Active Substance: LAMOTRIGINE
  41. OMEPRAZOLE. [Concomitant]
     Active Substance: OMEPRAZOLE
  42. SUMATRIPTAN. [Concomitant]
     Active Substance: SUMATRIPTAN

REACTIONS (8)
  - Renal disorder [Unknown]
  - Emotional distress [Unknown]
  - Anhedonia [Unknown]
  - Pain [Unknown]
  - Economic problem [Unknown]
  - Bone density decreased [Unknown]
  - Anxiety [Unknown]
  - Multiple fractures [Unknown]
